FAERS Safety Report 9772418 (Version 1)
Quarter: 2013Q4

REPORT INFORMATION
  Report Type: Spontaneous
  Country: US (occurrence: None)
  Receive Date: 20131218
  Receipt Date: 20131218
  Transmission Date: 20140711
  Serious: Yes (Hospitalization)
  Sender: FDA-Public Use
  Company Number: None

PATIENT
  Age: 52 Year
  Sex: Female
  Weight: 64.6 kg

DRUGS (1)
  1. EFFIENT [Suspect]
     Indication: ANTICOAGULANT THERAPY
     Route: 048
     Dates: start: 20130520, end: 20130527

REACTIONS (5)
  - Urticaria [None]
  - Dyspnoea [None]
  - Dizziness [None]
  - Petechiae [None]
  - Pruritus [None]
